FAERS Safety Report 19997389 (Version 2)
Quarter: 2022Q3

REPORT INFORMATION
  Report Type: Spontaneous
  Country: FR (occurrence: FR)
  Receive Date: 20211026
  Receipt Date: 20220826
  Transmission Date: 20221027
  Serious: Yes (Death)
  Sender: FDA-Public Use
  Company Number: None

PATIENT
  Age: 18 Year
  Sex: Female

DRUGS (2)
  1. BRAFTOVI [Suspect]
     Active Substance: ENCORAFENIB
     Indication: Astrocytoma, low grade
     Dosage: 15 MG 6*/DAY
     Route: 048
     Dates: start: 20210113, end: 20210901
  2. MEKTOVI [Suspect]
     Active Substance: BINIMETINIB
     Indication: Astrocytoma, low grade
     Dosage: 15 MG 6*/DAY
     Route: 048
     Dates: start: 20210113, end: 20210901

REACTIONS (5)
  - Enterocolitis [Fatal]
  - Decreased appetite [Not Recovered/Not Resolved]
  - Decreased appetite [Not Recovered/Not Resolved]
  - Off label use [Unknown]
  - Product use in unapproved indication [Unknown]

NARRATIVE: CASE EVENT DATE: 20210204
